FAERS Safety Report 11915651 (Version 1)
Quarter: 2016Q1

REPORT INFORMATION
  Report Type: Spontaneous
  Country: US (occurrence: None)
  Receive Date: 20160113
  Receipt Date: 20160113
  Transmission Date: 20160526
  Serious: Yes (Life-Threatening, Hospitalization, Disabling)
  Sender: FDA-Public Use
  Company Number: None

PATIENT
  Age: 34 Year
  Sex: Female
  Weight: 111.13 kg

DRUGS (9)
  1. METFORMIN [Concomitant]
     Active Substance: METFORMIN HYDROCHLORIDE
  2. RECLIPSEN [Suspect]
     Active Substance: DESOGESTREL\ETHINYL ESTRADIOL
     Indication: VAGINAL HAEMORRHAGE
     Route: 048
     Dates: start: 20150817, end: 20150820
  3. QUASENSE [Suspect]
     Active Substance: ETHINYL ESTRADIOL\LEVONORGESTREL
     Indication: VAGINAL HAEMORRHAGE
     Dosage: TAKEN BY MOUTH
     Dates: start: 20150625, end: 20150820
  4. TOPIRAMATE. [Concomitant]
     Active Substance: TOPIRAMATE
  5. COLACE [Concomitant]
     Active Substance: DOCUSATE SODIUM
  6. OMEPRAZOLE. [Concomitant]
     Active Substance: OMEPRAZOLE
  7. PROPRANOLOL [Concomitant]
     Active Substance: PROPRANOLOL\PROPRANOLOL HYDROCHLORIDE
  8. VIT.D 5000 [Concomitant]
  9. PRISTIQ EXTENDED RELEASE [Concomitant]
     Active Substance: DESVENLAFAXINE SUCCINATE

REACTIONS (11)
  - Deep vein thrombosis [None]
  - Acquired diaphragmatic eventration [None]
  - Effusion [None]
  - Pleurisy [None]
  - Infarction [None]
  - Oxygen saturation decreased [None]
  - Pulmonary embolism [None]
  - Fatigue [None]
  - Vaginal haemorrhage [None]
  - Condition aggravated [None]
  - Cardiac disorder [None]

NARRATIVE: CASE EVENT DATE: 20150825
